FAERS Safety Report 18431765 (Version 1)
Quarter: 2020Q4

REPORT INFORMATION
  Report Type: Spontaneous
  Country: JP (occurrence: JP)
  Receive Date: 20201027
  Receipt Date: 20201027
  Transmission Date: 20210114
  Serious: Yes (Disabling)
  Sender: FDA-Public Use
  Company Number: JP-CELLTRION INC.-2019JP024853

PATIENT

DRUGS (2)
  1. TRASTUZUMAB BS FOR I.V. INFUSION [NK] [Suspect]
     Active Substance: TRASTUZUMAB
     Indication: BREAST CANCER
     Dosage: 115 MILLIGRAM, WEEKLY
     Route: 041
     Dates: start: 20190531, end: 20190906
  2. ROZEUS [Concomitant]
     Active Substance: VINORELBINE TARTRATE
     Indication: BREAST CANCER
     Dosage: 10 MG
     Dates: end: 20190906

REACTIONS (3)
  - Off label use [Unknown]
  - Cardiomyopathy [Recovering/Resolving]
  - Underdose [Unknown]

NARRATIVE: CASE EVENT DATE: 20190908
